FAERS Safety Report 15654438 (Version 1)
Quarter: 2018Q4

REPORT INFORMATION
  Report Type: Report from Study
  Country: DE (occurrence: DE)
  Receive Date: 20181126
  Receipt Date: 20181126
  Transmission Date: 20190205
  Serious: Yes (Other)
  Sender: FDA-Public Use
  Company Number: DE-BRISTOL-MYERS SQUIBB COMPANY-BMS-2018-106029

PATIENT
  Age: 17 Year
  Sex: Female

DRUGS (2)
  1. METHOTREXATE. [Suspect]
     Active Substance: METHOTREXATE
     Indication: JUVENILE IDIOPATHIC ARTHRITIS
     Dosage: 17.5 MG, QWK
     Route: 065
     Dates: start: 20150302
  2. ABATACEPT [Suspect]
     Active Substance: ABATACEPT
     Indication: JUVENILE IDIOPATHIC ARTHRITIS
     Dosage: 600 MG, Q4WK
     Route: 065
     Dates: start: 20161125

REACTIONS (1)
  - Psoriasis [Not Recovered/Not Resolved]
